FAERS Safety Report 24112891 (Version 1)
Quarter: 2024Q3

REPORT INFORMATION
  Report Type: Spontaneous
  Country: US (occurrence: US)
  Receive Date: 20240719
  Receipt Date: 20240719
  Transmission Date: 20241016
  Serious: No
  Sender: UPSHER-SMITH
  Company Number: US-UPSHER-SMITH LABORATORIES, LLC-2023USL00691

PATIENT
  Age: 65 Year
  Sex: Male
  Weight: 72.562 kg

DRUGS (6)
  1. TESTOSTERONE [Suspect]
     Active Substance: TESTOSTERONE
     Indication: Hypogonadism
     Dosage: 150 MG, 1X/DAY TO SHOULDERS/UPPER ARMS
     Route: 061
  2. ZETIA [Concomitant]
     Active Substance: EZETIMIBE
     Dosage: 20 MG, 1X/DAY
  3. BUDESONIDE [Concomitant]
     Active Substance: BUDESONIDE
  4. LORATADINE [Concomitant]
     Active Substance: LORATADINE
     Dosage: UNK, 1X/DAY
  5. VITAMINS [Concomitant]
     Active Substance: VITAMINS
     Dosage: UNK, 1X/DAY
  6. VITAMIN C [Concomitant]
     Active Substance: ASCORBIC ACID
     Dosage: 1000 MG, 1X/DAY

REACTIONS (2)
  - Skin irritation [Recovered/Resolved]
  - Erythema [Recovered/Resolved]
